FAERS Safety Report 11203758 (Version 1)
Quarter: 2015Q2

REPORT INFORMATION
  Report Type: Report from Study
  Country: JP (occurrence: JP)
  Receive Date: 20150619
  Receipt Date: 20150619
  Transmission Date: 20150821
  Serious: Yes (Death)
  Sender: FDA-Public Use
  Company Number: JP-MYLANLABS-2015M1019231

PATIENT

DRUGS (1)
  1. VANCOMYCIN FOR I.V. INFUSION 1G ^MYLAN^ [Suspect]
     Active Substance: VANCOMYCIN HYDROCHLORIDE
     Indication: PNEUMONIA
     Dosage: 1 G, BID
     Route: 041
     Dates: start: 20120113, end: 20120119

REACTIONS (1)
  - Drug ineffective [Fatal]

NARRATIVE: CASE EVENT DATE: 20120216
